FAERS Safety Report 23775180 (Version 5)
Quarter: 2024Q4

REPORT INFORMATION
  Report Type: Spontaneous
  Country: FI (occurrence: FI)
  Receive Date: 20240423
  Receipt Date: 20241007
  Transmission Date: 20250114
  Serious: Yes (Other)
  Sender: BAYER
  Company Number: FI-BAYER-2024A049171

PATIENT
  Sex: Female

DRUGS (1)
  1. MIRENA [Suspect]
     Active Substance: LEVONORGESTREL
     Dosage: 20?G/DAY
     Route: 015
     Dates: start: 20201202, end: 20210312

REACTIONS (29)
  - Postmenopausal haemorrhage [None]
  - Gangrene [None]
  - Sepsis [Not Recovered/Not Resolved]
  - Arrhythmia [None]
  - Inflammation [None]
  - Device allergy [None]
  - Complication of device removal [None]
  - Skin disorder [None]
  - Female reproductive tract disorder [None]
  - Premenstrual syndrome [None]
  - Muscular weakness [None]
  - Neurological symptom [Not Recovered/Not Resolved]
  - Swelling [None]
  - Urticaria [None]
  - Alopecia [None]
  - Dyskinesia [None]
  - Abdominal distension [None]
  - Premenstrual dysphoric disorder [None]
  - Illness [None]
  - Vulvovaginal swelling [Not Recovered/Not Resolved]
  - Infection [None]
  - Loss of libido [Not Recovered/Not Resolved]
  - Hypersensitivity [Not Recovered/Not Resolved]
  - Insomnia [Not Recovered/Not Resolved]
  - Fluid retention [Not Recovered/Not Resolved]
  - Increased need for sleep [Not Recovered/Not Resolved]
  - Physical disability [Not Recovered/Not Resolved]
  - Breast enlargement [Not Recovered/Not Resolved]
  - Disorientation [None]

NARRATIVE: CASE EVENT DATE: 20230101
